FAERS Safety Report 11515288 (Version 1)
Quarter: 2015Q3

REPORT INFORMATION
  Report Type: Report from Study
  Country: US (occurrence: US)
  Receive Date: 20150916
  Receipt Date: 20150916
  Transmission Date: 20151125
  Serious: Yes (Death, Other)
  Sender: FDA-Public Use
  Company Number: US-GLAXOSMITHKLINE-US2015GSK132791

PATIENT
  Age: 77 Year
  Sex: Male
  Weight: 82.3 kg

DRUGS (2)
  1. PACLITAXEL. [Suspect]
     Active Substance: PACLITAXEL
     Indication: THYROID CANCER
     Dosage: 167 MG, SINGLE
     Route: 042
     Dates: start: 20150827, end: 20150827
  2. PAZOPANIB [Suspect]
     Active Substance: PAZOPANIB
     Indication: THYROID CANCER
     Dosage: 400 MG, QD
     Route: 048
     Dates: start: 20150827, end: 20150902

REACTIONS (1)
  - Death [Fatal]

NARRATIVE: CASE EVENT DATE: 20150903
